FAERS Safety Report 9511041 (Version 1)
Quarter: 2013Q3

REPORT INFORMATION
  Report Type: Spontaneous
  Country: US (occurrence: None)
  Receive Date: 20130905
  Receipt Date: 20130905
  Transmission Date: 20140515
  Serious: Yes (Hospitalization)
  Sender: FDA-Public Use
  Company Number: US-RRD-13-00014

PATIENT
  Age: 14 Year
  Sex: Male
  Weight: 59.5 kg

DRUGS (7)
  1. ELSPAR [Suspect]
     Indication: B PRECURSOR TYPE ACUTE LEUKAEMIA
     Dosage: 2500 IU/M2 OVER 1-2 HOURS CYCLIC ON DAYS 2, 8, 15?AND 22 DURING A 35-DAY CYCLE, INTRAMUSCULARLY
     Dates: start: 20130701
  2. VELCADE [Suspect]
     Indication: B PRECURSOR TYPE ACUTE LEUKAEMIA
     Dosage: 1.3 MG/M2 OVER 3-5 SECONDS, CYCLIC ON DAYS 1, 4, 8 AND 11,INTRAVENOUS BOLUS
     Dates: start: 20130701, end: 20130712
  3. DOXORUBICIN [Suspect]
     Dosage: 60 MG/M2 OVER 15 MINUTES, CYCLIC ON DAY ^,INTRAVENOUS (NOT OTHERWISE SPECIFIED)
     Dates: start: 20130701, end: 20130702
  4. CYTARABINE [Suspect]
     Dosage: 70 MG (CYCLICAL),INTRATHECAL
     Dates: start: 20130701, end: 20130701
  5. METHOTREXATE [Suspect]
     Dosage: 5 MG CYCLIC ON DAYS 15 AND 29,INTRATHECAL
     Dates: start: 20130701
  6. PREDNISONE [Suspect]
     Dosage: 40 MG/M2 (20 MG/M2,2 IN 1 C),ORAL
     Dates: start: 20130701
  7. VINCRISTINE [Suspect]
     Dosage: .5 MG/M2 OVER 1 MINUTE, CYCLIC ON DAYS 1, 8, 15 AND 22,INTRAVENOUS BOLUS
     Dates: start: 20130701

REACTIONS (16)
  - Chest pain [None]
  - Tremor [None]
  - Pyrexia [None]
  - Hypertension [None]
  - Hypotension [None]
  - Tachycardia [None]
  - Pallor [None]
  - Somnolence [None]
  - Pseudomonal sepsis [None]
  - Mucosal inflammation [None]
  - Herpes simplex [None]
  - Bacteraemia [None]
  - Staphylococcal infection [None]
  - Device related infection [None]
  - Pneumonia [None]
  - Pancytopenia [None]
